FAERS Safety Report 6167214-4 (Version None)
Quarter: 2009Q2

REPORT INFORMATION
  Report Type: 
  Country: None (occurrence: None)
  Receive Date: 20090424
  Receipt Date: 20090414
  Transmission Date: 20091009
  Serious: Yes (Other)
  Sender: FDA-Public Use
  Company Number: JP-PFIZER INC-2009196565

PATIENT

DRUGS (7)
  1. ZOLOFT [Suspect]
     Indication: DEPRESSION
     Dosage: 50 MG, 1X/DAY
     Route: 048
     Dates: start: 20081117
  2. ZOLOFT [Suspect]
  3. ROHYPNOL [Concomitant]
     Dosage: UNK
     Route: 048
     Dates: start: 20081117, end: 20090301
  4. BENZALIN [Concomitant]
     Dosage: UNK
     Route: 048
     Dates: start: 20081118, end: 20090301
  5. CERCINE [Concomitant]
     Route: 048
     Dates: start: 20081127, end: 20081130
  6. LEXOTAN [Concomitant]
     Dosage: UNK
     Route: 048
     Dates: start: 20081127, end: 20090107
  7. CONTOMIN [Concomitant]
     Route: 048
     Dates: start: 20081117, end: 20090114

REACTIONS (3)
  - AGGRESSION [None]
  - COMMUNICATION DISORDER [None]
  - IRRITABILITY [None]
